FAERS Safety Report 4629873-4 (Version None)
Quarter: 2005Q2

REPORT INFORMATION
  Report Type: 
  Country: None (occurrence: None)
  Receive Date: 20050407
  Receipt Date: 20050325
  Transmission Date: 20051028
  Serious: Yes (Hospitalization, Other)
  Sender: FDA-Public Use
  Company Number: 2005050661

PATIENT
  Age: 48 Year
  Sex: Male

DRUGS (1)
  1. FRAGMIN [Suspect]
     Indication: HIP ARTHROPLASTY
     Dates: start: 20050201

REACTIONS (2)
  - ANGINA UNSTABLE [None]
  - MYOCARDIAL INFARCTION [None]
